FAERS Safety Report 12273525 (Version 1)
Quarter: 2016Q2

REPORT INFORMATION
  Report Type: Spontaneous
  Country: GB (occurrence: GB)
  Receive Date: 20160415
  Receipt Date: 20160415
  Transmission Date: 20160815
  Serious: Yes (Other)
  Sender: FDA-Public Use
  Company Number: GB-TEVA-650880ACC

PATIENT
  Age: 53 Year
  Sex: Female

DRUGS (3)
  1. GABAPENTIN. [Suspect]
     Active Substance: GABAPENTIN
     Indication: INTERVERTEBRAL DISC PROTRUSION
     Dosage: 300MG CAPSULES, STARTING 1 ONCE DAILY, INCREASING AS PER BNF NEUROPATHIC PAIN GUIDELINES.
     Route: 048
     Dates: start: 20150903, end: 20150912
  2. PREGABALIN. [Concomitant]
     Active Substance: PREGABALIN
     Dates: start: 201501, end: 20150901
  3. CITALOPRAM [Concomitant]
     Active Substance: CITALOPRAM HYDROBROMIDE
     Indication: MAJOR DEPRESSION
     Dates: start: 2014

REACTIONS (1)
  - Mouth ulceration [Recovered/Resolved]

NARRATIVE: CASE EVENT DATE: 20150910
